FAERS Safety Report 9740646 (Version 1)
Quarter: 2013Q4

REPORT INFORMATION
  Report Type: Report from Study
  Country: US (occurrence: US)
  Receive Date: 20131209
  Receipt Date: 20131209
  Transmission Date: 20140711
  Serious: Yes (Other)
  Sender: FDA-Public Use
  Company Number: US-CELGENEUS-163-21880-13120202

PATIENT
  Age: 45 Year
  Sex: Female
  Weight: 79.9 kg

DRUGS (3)
  1. REVLIMID [Suspect]
     Indication: PLASMA CELL MYELOMA
     Route: 065
  2. MELPHALAN [Concomitant]
     Indication: PLASMA CELL MYELOMA
     Route: 065
  3. PREDNISONE [Concomitant]
     Indication: PLASMA CELL MYELOMA
     Route: 065

REACTIONS (2)
  - Plasma cell myeloma [Unknown]
  - Toxicity to various agents [Unknown]
